FAERS Safety Report 5920886-9 (Version None)
Quarter: 2008Q4

REPORT INFORMATION
  Report Type: 
  Country: None (occurrence: None)
  Receive Date: 20081015
  Receipt Date: 20081015
  Transmission Date: 20090506
  Serious: Yes (Life-Threatening)
  Sender: FDA-Public Use
  Company Number: None

PATIENT
  Sex: Female
  Weight: 104.3273 kg

DRUGS (1)
  1. DEPO-MEDROL [Suspect]
     Indication: URTICARIA
     Dosage: 80 MG IM
     Route: 030
     Dates: start: 20081012, end: 20081012

REACTIONS (1)
  - ANAPHYLACTIC SHOCK [None]
